FAERS Safety Report 12949840 (Version 1)
Quarter: 2016Q4

REPORT INFORMATION
  Report Type: Spontaneous
  Country: US (occurrence: US)
  Receive Date: 20161116
  Receipt Date: 20161116
  Transmission Date: 20170207
  Serious: Yes (Hospitalization)
  Sender: FDA-Public Use
  Company Number: None

PATIENT
  Age: 56 Year
  Sex: Male
  Weight: 103.95 kg

DRUGS (4)
  1. ZETIA [Suspect]
     Active Substance: EZETIMIBE
     Indication: HYPERLIPIDAEMIA
     Route: 048
     Dates: start: 20160701
  2. PRALUENT [Suspect]
     Active Substance: ALIROCUMAB
     Indication: HYPERLIPIDAEMIA
     Dosage: ?          OTHER FREQUENCY:ONCE IN 2 WEEKS;?
     Route: 058
     Dates: start: 20160701, end: 20160713
  3. PRALUENT [Suspect]
     Active Substance: ALIROCUMAB
     Indication: DRUG INTOLERANCE
     Dosage: ?          OTHER FREQUENCY:ONCE IN 2 WEEKS;?
     Route: 058
     Dates: start: 20160701, end: 20160713
  4. ZETIA [Suspect]
     Active Substance: EZETIMIBE
     Indication: DRUG INTOLERANCE
     Route: 048
     Dates: start: 20160701

REACTIONS (4)
  - Blood creatine phosphokinase increased [None]
  - Extensor plantar response [None]
  - Muscular weakness [None]
  - Drug interaction [None]

NARRATIVE: CASE EVENT DATE: 20160713
